FAERS Safety Report 18977103 (Version 1)
Quarter: 2021Q1

REPORT INFORMATION
  Report Type: Spontaneous
  Country: US (occurrence: US)
  Receive Date: 20210306
  Receipt Date: 20210306
  Transmission Date: 20210420
  Serious: No
  Sender: FDA-Public Use
  Company Number: US-SA-2021SA075449

PATIENT
  Age: 51 Year
  Sex: Female

DRUGS (1)
  1. THYROGEN [Suspect]
     Active Substance: THYROTROPIN ALFA
     Dosage: TOTAL (TWICE)
     Dates: start: 2014

REACTIONS (1)
  - Lymphadenopathy [Unknown]

NARRATIVE: CASE EVENT DATE: 20210201
